FAERS Safety Report 15390952 (Version 1)
Quarter: 2018Q3

REPORT INFORMATION
  Report Type: Spontaneous
  Country: US (occurrence: US)
  Receive Date: 20180910
  Receipt Date: 20180910
  Transmission Date: 20181010
  Serious: Yes (Other)
  Sender: FDA-Public Use
  Company Number: None

PATIENT
  Age: 52 Year
  Sex: Female

DRUGS (10)
  1. LASIX [Concomitant]
     Active Substance: FUROSEMIDE
  2. FERROUS SULFATE. [Concomitant]
     Active Substance: FERROUS SULFATE
  3. METOPROLOL. [Concomitant]
     Active Substance: METOPROLOL
  4. REMODULIN [Concomitant]
     Active Substance: TREPROSTINIL
  5. GABAPENTIN. [Concomitant]
     Active Substance: GABAPENTIN
  6. OPSUMIT [Suspect]
     Active Substance: MACITENTAN
     Indication: PULMONARY HYPERTENSION
     Dates: start: 201609
  7. WARFARIN [Concomitant]
     Active Substance: WARFARIN
  8. VITAMIN B12 [Concomitant]
     Active Substance: CYANOCOBALAMIN
  9. ZOFRAN [Concomitant]
     Active Substance: ONDANSETRON HYDROCHLORIDE
  10. COLACE [Concomitant]
     Active Substance: DOCUSATE SODIUM

REACTIONS (2)
  - Musculoskeletal pain [None]
  - Arthritis [None]

NARRATIVE: CASE EVENT DATE: 20180825
